FAERS Safety Report 13660490 (Version 2)
Quarter: 2017Q3

REPORT INFORMATION
  Report Type: Report from Study
  Country: None (occurrence: US)
  Receive Date: 20170616
  Receipt Date: 20170918
  Transmission Date: 20171127
  Serious: Yes (Other)
  Sender: FDA-Public Use
  Company Number: US-ABBVIE-17K-163-2002332-00

PATIENT
  Sex: Male
  Weight: 68.1 kg

DRUGS (1)
  1. HUMIRA [Suspect]
     Active Substance: ADALIMUMAB
     Indication: COLITIS ULCERATIVE
     Route: 058
     Dates: start: 20160607, end: 201701

REACTIONS (2)
  - Crohn^s disease [Recovering/Resolving]
  - Thyroid mass [Unknown]

NARRATIVE: CASE EVENT DATE: 2017
